FAERS Safety Report 13914161 (Version 1)
Quarter: 2017Q3

REPORT INFORMATION
  Report Type: Spontaneous
  Country: US (occurrence: US)
  Receive Date: 20170828
  Receipt Date: 20170828
  Transmission Date: 20171127
  Serious: No
  Sender: FDA-Public Use
  Company Number: US-ROCHE-1130451

PATIENT
  Sex: Female

DRUGS (10)
  1. CORTEF [Concomitant]
     Active Substance: HYDROCORTISONE
  2. DECADRON [Concomitant]
     Active Substance: DEXAMETHASONE
  3. NUTROPIN [Suspect]
     Active Substance: SOMATROPIN
     Indication: PRODUCT USED FOR UNKNOWN INDICATION
  4. ENBREL [Concomitant]
     Active Substance: ETANERCEPT
  5. COLESTID [Concomitant]
     Active Substance: COLESTIPOL HYDROCHLORIDE
  6. PRED [Concomitant]
     Active Substance: PREDNISONE
     Route: 065
  7. QUESTRAN [Concomitant]
     Active Substance: CHOLESTYRAMINE
  8. ARAVA [Concomitant]
     Active Substance: LEFLUNOMIDE
  9. FLAGYL [Concomitant]
     Active Substance: METRONIDAZOLE\METRONIDAZOLE HYDROCHLORIDE
  10. METHOTREXATE. [Concomitant]
     Active Substance: METHOTREXATE

REACTIONS (4)
  - Diarrhoea [Unknown]
  - Polyuria [Unknown]
  - Rash [Unknown]
  - Rheumatoid arthritis [Unknown]
